FAERS Safety Report 11404652 (Version 1)
Quarter: 2015Q3

REPORT INFORMATION
  Report Type: Report from Study
  Country: BR (occurrence: BR)
  Receive Date: 20150821
  Receipt Date: 20150821
  Transmission Date: 20151125
  Serious: Yes (Hospitalization, Other)
  Sender: FDA-Public Use
  Company Number: BR-ABBVIE-15K-020-1391938-00

PATIENT
  Age: 54 Year
  Sex: Female

DRUGS (4)
  1. PIROXICAM. [Concomitant]
     Active Substance: PIROXICAM
     Indication: ARTHRALGIA
  2. PREDNISONE. [Concomitant]
     Active Substance: PREDNISONE
     Indication: ARTHRALGIA
  3. HUMIRA [Suspect]
     Active Substance: ADALIMUMAB
     Indication: RHEUMATOID ARTHRITIS
     Route: 058
     Dates: start: 20150413
  4. MELOXICAM. [Concomitant]
     Active Substance: MELOXICAM
     Indication: ARTHRALGIA

REACTIONS (6)
  - Pulmonary function test decreased [Recovering/Resolving]
  - Postmenopausal haemorrhage [Recovered/Resolved]
  - Pneumonia [Recovering/Resolving]
  - Malaise [Recovered/Resolved]
  - Immunodeficiency [Unknown]
  - Pneumonia bacterial [Recovering/Resolving]

NARRATIVE: CASE EVENT DATE: 2015
